FAERS Safety Report 20742839 (Version 2)
Quarter: 2022Q2

REPORT INFORMATION
  Report Type: Spontaneous
  Country: None (occurrence: DE)
  Receive Date: 20220424
  Receipt Date: 20220510
  Transmission Date: 20220721
  Serious: Yes (Other)
  Sender: FDA-Public Use
  Company Number: DE-Ascend Therapeutics US, LLC-2128100

PATIENT
  Age: 51 Year
  Sex: Female
  Weight: 81.5 kg

DRUGS (6)
  1. ESTROGEL [Suspect]
     Active Substance: ESTRADIOL
     Indication: Product used for unknown indication
     Route: 065
     Dates: start: 2020, end: 202201
  2. ESTROGEL [Suspect]
     Active Substance: ESTRADIOL
  3. ESTRADIOL HEMIHYDRATE [Suspect]
     Active Substance: ESTRADIOL HEMIHYDRATE
     Route: 065
     Dates: start: 2020, end: 202201
  4. PROGESTERONE [Suspect]
     Active Substance: PROGESTERONE
     Route: 065
     Dates: start: 2021, end: 2021
  5. DYDROGESTERONE\ESTRADIOL [Suspect]
     Active Substance: DYDROGESTERONE\ESTRADIOL
     Route: 065
     Dates: start: 202008
  6. vitamin D3(COLECALCIFEROL) [Concomitant]
     Route: 065

REACTIONS (10)
  - Autoimmune thyroiditis [Unknown]
  - Malaise [Unknown]
  - Hypoaesthesia [Unknown]
  - Seborrhoea [Unknown]
  - Palpitations [Unknown]
  - Feeling cold [Unknown]
  - Iron deficiency [Unknown]
  - Abdominal discomfort [Unknown]
  - Fluid retention [Unknown]
  - Weight decreased [Unknown]

NARRATIVE: CASE EVENT DATE: 20210801
